FAERS Safety Report 24696262 (Version 1)
Quarter: 2024Q4

REPORT INFORMATION
  Report Type: Spontaneous
  Country: CN (occurrence: CN)
  Receive Date: 20241204
  Receipt Date: 20241204
  Transmission Date: 20250114
  Serious: Yes (Hospitalization, Other)
  Sender: ABBVIE
  Company Number: CN-ABBVIE-6027454

PATIENT
  Age: 59 Year
  Sex: Female
  Weight: 69 kg

DRUGS (2)
  1. VENETOCLAX [Suspect]
     Active Substance: VENETOCLAX
     Indication: Acute myeloid leukaemia
     Dosage: 400 MILLIGRAM
     Route: 048
     Dates: start: 20241111, end: 20241115
  2. CYTARABINE [Suspect]
     Active Substance: CYTARABINE
     Indication: Acute myeloid leukaemia
     Route: 041
     Dates: start: 20241107, end: 20241110

REACTIONS (2)
  - Myelosuppression [Recovering/Resolving]
  - Granulocytopenia [Unknown]

NARRATIVE: CASE EVENT DATE: 20241116
